FAERS Safety Report 11156078 (Version 3)
Quarter: 2015Q3

REPORT INFORMATION
  Report Type: Report from Study
  Country: JP (occurrence: JP)
  Receive Date: 20150602
  Receipt Date: 20150731
  Transmission Date: 20151125
  Serious: Yes (Death, Life-Threatening)
  Sender: FDA-Public Use
  Company Number: JP-PFIZER INC-2015114162

PATIENT
  Age: 21 Year
  Sex: Female
  Weight: 36.8 kg

DRUGS (24)
  1. TYGACIL [Suspect]
     Active Substance: TIGECYCLINE
     Dosage: 50 MG, 2X/DAY
     Route: 041
     Dates: start: 20150225, end: 20150323
  2. HEPARIN SODIUM. [Concomitant]
     Active Substance: HEPARIN SODIUM
     Route: 042
  3. ZOSYN [Concomitant]
     Active Substance: PIPERACILLIN SODIUM\TAZOBACTAM SODIUM
     Route: 042
  4. BISOLVON [Concomitant]
     Active Substance: BROMHEXINE HYDROCHLORIDE
     Route: 042
  5. AZILVA [Concomitant]
     Active Substance: AZILSARTAN KAMEDOXOMIL
     Route: 048
  6. MAINTATE [Concomitant]
     Active Substance: BISOPROLOL FUMARATE
     Route: 048
  7. TAKEPRON [Concomitant]
     Active Substance: LANSOPRAZOLE
     Route: 048
  8. BIOFERMIN R [Concomitant]
     Active Substance: BACILLUS SUBTILIS\LACTOBACILLUS ACIDOPHILUS\STREPTOCOCCUS FAECAIS
     Route: 048
  9. HYALEIN [Concomitant]
     Active Substance: HYALURONATE SODIUM
     Route: 047
  10. TYGACIL [Suspect]
     Active Substance: TIGECYCLINE
     Indication: BACTERAEMIA
     Dosage: 100 MG IN THE AFTERNOON, 50 MG AT NIGHT, 2X/DAY
     Route: 041
     Dates: start: 20150224, end: 20150224
  11. SENNOSIDE /00571901/ [Concomitant]
     Active Substance: SENNOSIDES A AND B
     Route: 048
  12. AZUCURENIN S [Concomitant]
     Active Substance: GLUTAMINE
     Route: 048
  13. MIYA-BM [Concomitant]
     Active Substance: CLOSTRIDIUM BUTYRICUM SPORES STRAIN M-55
     Route: 048
  14. UROKINASE [Concomitant]
     Active Substance: UROKINASE
     Route: 042
  15. ARCRANE [Concomitant]
     Route: 048
  16. PREDONINE [Concomitant]
     Active Substance: PREDNISOLONE\PREDNISOLONE ACETATE\PREDNISOLONE SODIUM SUCCINATE
     Route: 048
  17. NEORAL [Concomitant]
     Active Substance: CYCLOSPORINE
     Route: 048
  18. DEPAKENE [Concomitant]
     Active Substance: VALPROIC ACID
     Route: 048
  19. BAKTAR [Concomitant]
     Active Substance: SULFAMETHOXAZOLE\TRIMETHOPRIM
     Route: 048
  20. CARBOCISTEINE [Concomitant]
     Active Substance: CARBOCYSTEINE
     Route: 048
  21. MUCOSAL /00082801/ [Concomitant]
     Route: 048
  22. BIO-THREE [Concomitant]
     Active Substance: HERBALS
     Route: 048
  23. ISODINE SUGAR [Concomitant]
     Route: 062
  24. TOBRACIN /00304201/ [Concomitant]
     Route: 042

REACTIONS (10)
  - Condition aggravated [Fatal]
  - Systemic candida [Not Recovered/Not Resolved]
  - Lactic acidosis [Not Recovered/Not Resolved]
  - Systemic lupus erythematosus [Fatal]
  - Disseminated intravascular coagulation [Not Recovered/Not Resolved]
  - Thrombocytopenia [Not Recovered/Not Resolved]
  - Pleural effusion [Not Recovered/Not Resolved]
  - Altered state of consciousness [Not Recovered/Not Resolved]
  - Thrombotic microangiopathy [Not Recovered/Not Resolved]
  - Venous thrombosis [Not Recovered/Not Resolved]

NARRATIVE: CASE EVENT DATE: 20150304
